FAERS Safety Report 21372333 (Version 5)
Quarter: 2022Q4

REPORT INFORMATION
  Report Type: Report from Study
  Country: US (occurrence: US)
  Receive Date: 20220924
  Receipt Date: 20221122
  Transmission Date: 20230113
  Serious: No
  Sender: FDA-Public Use
  Company Number: US-NOVARTISTESTPH-NVSC2022US215431

PATIENT
  Sex: Male

DRUGS (1)
  1. COSENTYX [Suspect]
     Active Substance: SECUKINUMAB
     Indication: Psoriasis
     Dosage: 300 MG, QW
     Route: 058
     Dates: start: 20220824

REACTIONS (4)
  - Injection site coldness [Recovering/Resolving]
  - Injection site pain [Not Recovered/Not Resolved]
  - Product administered at inappropriate site [Recovering/Resolving]
  - Wrong technique in product usage process [Unknown]
